FAERS Safety Report 15647340 (Version 1)
Quarter: 2018Q4

REPORT INFORMATION
  Report Type: Spontaneous
  Country: BR (occurrence: BR)
  Receive Date: 20181122
  Receipt Date: 20181122
  Transmission Date: 20190205
  Serious: Yes (Other)
  Sender: FDA-Public Use
  Company Number: BR-ABBVIE-18K-020-2563145-00

PATIENT
  Age: 51 Year
  Sex: Female

DRUGS (1)
  1. HUMIRA [Suspect]
     Active Substance: ADALIMUMAB
     Indication: ANKYLOSING SPONDYLITIS
     Route: 058
     Dates: start: 2008

REACTIONS (8)
  - Thyroid cancer [Unknown]
  - Appendicitis [Unknown]
  - Pain [Unknown]
  - Aortic aneurysm [Unknown]
  - Cerebrovascular accident [Unknown]
  - Depression [Unknown]
  - Musculoskeletal disorder [Unknown]
  - Arthropathy [Unknown]
